FAERS Safety Report 5430280-5 (Version None)
Quarter: 2007Q3

REPORT INFORMATION
  Report Type: 
  Country: None (occurrence: None)
  Receive Date: 20070731
  Receipt Date: 20070415
  Transmission Date: 20080115
  Serious: No
  Sender: FDA-Public Use
  Company Number: US200704003388

PATIENT
  Age: 82 Year
  Sex: Female

DRUGS (4)
  1. BYETTA [Suspect]
     Indication: INSULIN-REQUIRING TYPE II DIABETES MELLITUS
     Dosage: 5 UG, 2/D, SUBCUTAENOUS
     Route: 058
     Dates: start: 20070413
  2. HUMALOG [Concomitant]
  3. HUMULIN N [Concomitant]
  4. LEVEMIR (INSULIN DETERMIR) [Concomitant]

REACTIONS (1)
  - BLOOD GLUCOSE INCREASED [None]
